FAERS Safety Report 20147812 (Version 4)
Quarter: 2022Q2

REPORT INFORMATION
  Report Type: Report from Study
  Country: GB (occurrence: GB)
  Receive Date: 20211203
  Receipt Date: 20220603
  Transmission Date: 20220721
  Serious: Yes (Other)
  Sender: FDA-Public Use
  Company Number: GB-NOVARTISPH-NVSC2021GB273866

PATIENT
  Age: 56 Year
  Sex: Male

DRUGS (1)
  1. SIPONIMOD [Suspect]
     Active Substance: SIPONIMOD
     Indication: Secondary progressive multiple sclerosis
     Dosage: 2 MG, QD
     Route: 048
     Dates: start: 20210831

REACTIONS (9)
  - Lower respiratory tract infection [Recovering/Resolving]
  - Chest discomfort [Unknown]
  - Productive cough [Unknown]
  - Multiple sclerosis [Unknown]
  - Stress [Unknown]
  - Glossodynia [Unknown]
  - Tongue discomfort [Unknown]
  - Hypertension [Unknown]
  - Drug ineffective [Unknown]

NARRATIVE: CASE EVENT DATE: 20211126
